FAERS Safety Report 22613794 (Version 1)
Quarter: 2023Q2

REPORT INFORMATION
  Report Type: Report from Study
  Country: CA (occurrence: CA)
  Receive Date: 20230619
  Receipt Date: 20230619
  Transmission Date: 20230721
  Serious: Yes (Other)
  Sender: FDA-Public Use
  Company Number: CA-ABBVIE-5294015

PATIENT
  Age: 60 Year
  Sex: Male

DRUGS (1)
  1. LUPRON [Suspect]
     Active Substance: LEUPROLIDE ACETATE
     Indication: Prostate cancer
     Route: 030
     Dates: start: 20220419

REACTIONS (2)
  - Transient ischaemic attack [Unknown]
  - Macular degeneration [Unknown]

NARRATIVE: CASE EVENT DATE: 20230601
